FAERS Safety Report 4467750-2 (Version None)
Quarter: 2004Q4

REPORT INFORMATION
  Report Type: 
  Country: None (occurrence: None)
  Receive Date: 20041001
  Receipt Date: 20040917
  Transmission Date: 20050328
  Serious: No
  Sender: FDA-Public Use
  Company Number: 2004SE05276

PATIENT
  Age: 67 Year
  Sex: Female

DRUGS (1)
  1. LOSEC [Suspect]
     Dates: start: 19960606, end: 19990507

REACTIONS (5)
  - DIZZINESS [None]
  - DRY MOUTH [None]
  - DRY SKIN [None]
  - SJOGREN'S SYNDROME [None]
  - VISION BLURRED [None]
